FAERS Safety Report 9346401 (Version 1)
Quarter: 2013Q2

REPORT INFORMATION
  Report Type: Report from Study
  Country: AR (occurrence: AR)
  Receive Date: 20130613
  Receipt Date: 20130613
  Transmission Date: 20140414
  Serious: Yes (Hospitalization)
  Sender: FDA-Public Use
  Company Number: AR-PFIZER INC-2013175460

PATIENT
  Age: 57 Year
  Sex: Male

DRUGS (3)
  1. METHYLPREDNISOLONE [Suspect]
     Dosage: UNK
     Dates: start: 20061203
  2. CYCLOSPORIN A [Suspect]
     Indication: RENAL TRANSPLANT
     Dosage: 150 MG, 1 DAY
     Route: 048
     Dates: start: 20061207
  3. MYCOPHENOLATE MOFETIL [Suspect]
     Dosage: THERAPY DURATION: CONTINUED
     Dates: start: 20061201

REACTIONS (1)
  - Gastroenteritis [Recovered/Resolved]
